FAERS Safety Report 6357454-3 (Version None)
Quarter: 2009Q3

REPORT INFORMATION
  Report Type: 
  Country: None (occurrence: None)
  Receive Date: 20090916
  Receipt Date: 20090904
  Transmission Date: 20100115
  Serious: Yes (Hospitalization)
  Sender: FDA-Public Use
  Company Number: US-WYE-H10475209

PATIENT
  Sex: Female

DRUGS (12)
  1. PRISTIQ [Suspect]
     Indication: DEPRESSION
     Route: 048
     Dates: start: 20090514, end: 20090629
  2. PRISTIQ [Suspect]
     Indication: HOT FLUSH
     Route: 048
     Dates: start: 20090630, end: 20090726
  3. PRISTIQ [Suspect]
     Route: 048
     Dates: start: 20090727
  4. HYDROCHLOROTHIAZIDE [Concomitant]
     Indication: HYPERTENSION
     Route: 065
     Dates: start: 20090501
  5. BENAZEPRIL HYDROCHLORIDE [Concomitant]
     Indication: HYPERTENSION
     Route: 065
     Dates: start: 20090501
  6. VENTOLIN [Concomitant]
     Dosage: UNKNOWN DOSE AS NEEDED
     Route: 055
  7. ESTRADIOL [Concomitant]
     Route: 048
  8. PROTONIX [Concomitant]
     Indication: GASTROOESOPHAGEAL REFLUX DISEASE
     Route: 048
     Dates: start: 20081104
  9. XANAX [Concomitant]
     Indication: ANXIETY
     Dosage: UNKNOWN DOSE AS NEEDED FOR ANXIETY
     Route: 065
  10. SALBUTAMOL [Concomitant]
     Indication: ASTHMA
     Dosage: UNKNOWN DOSE AS NEEDED
     Route: 055
  11. METOPROLOL TARTRATE [Concomitant]
     Indication: HYPERTENSION
     Route: 065
     Dates: start: 20040101
  12. TRAZODONE [Concomitant]
     Indication: SEDATION
     Route: 048

REACTIONS (2)
  - INTRACARDIAC THROMBUS [None]
  - STRESS CARDIOMYOPATHY [None]
